FAERS Safety Report 17446632 (Version 1)
Quarter: 2020Q1

REPORT INFORMATION
  Report Type: Spontaneous
  Country: BR (occurrence: BR)
  Receive Date: 20200221
  Receipt Date: 20200221
  Transmission Date: 20200409
  Serious: Yes (Other)
  Sender: FDA-Public Use
  Company Number: BR-BAYER-2020-025557

PATIENT
  Sex: Female

DRUGS (1)
  1. MIRENA [Suspect]
     Active Substance: LEVONORGESTREL
     Dosage: 20 ?G, CONTINUOUSLY
     Route: 015
     Dates: start: 201503, end: 201810

REACTIONS (3)
  - Infertility female [Not Recovered/Not Resolved]
  - Endometrial atrophy [None]
  - Blood oestrogen abnormal [None]

NARRATIVE: CASE EVENT DATE: 201810
